FAERS Safety Report 15526417 (Version 3)
Quarter: 2019Q1

REPORT INFORMATION
  Report Type: Spontaneous
  Country: DE (occurrence: DE)
  Receive Date: 20181018
  Receipt Date: 20190311
  Transmission Date: 20190417
  Serious: Yes (Other)
  Sender: FDA-Public Use
  Company Number: DE-PFIZER INC-2018420830

PATIENT
  Age: 21 Year
  Sex: Male

DRUGS (4)
  1. SUFENTANIL [Concomitant]
     Active Substance: SUFENTANIL
     Dosage: 0.06 MG, Q1HR
  2. MIDAZOLAM [Concomitant]
     Active Substance: MIDAZOLAM HYDROCHLORIDE
     Dosage: 2 MG, Q1HR
  3. PANTOPRAZOLE [Suspect]
     Active Substance: PANTOPRAZOLE
     Dosage: 40 MG, QD
     Route: 065
  4. METAMIZOL [METAMIZOLE SODIUM] [Concomitant]
     Dosage: 1 G, QD

REACTIONS (1)
  - Blood creatine phosphokinase increased [Recovered/Resolved]

NARRATIVE: CASE EVENT DATE: 20180918
